FAERS Safety Report 23894290 (Version 1)
Quarter: 2024Q2

REPORT INFORMATION
  Report Type: Spontaneous
  Country: US (occurrence: None)
  Receive Date: 20240524
  Receipt Date: 20240524
  Transmission Date: 20240716
  Serious: No
  Sender: FDA-Public Use
  Company Number: US-ROCHE-3481940

PATIENT
  Sex: Female
  Weight: 115.77 kg

DRUGS (6)
  1. OCREVUS [Suspect]
     Active Substance: OCRELIZUMAB
     Indication: Relapsing-remitting multiple sclerosis
     Dosage: LAST DOSE ON 07/DEC/2023
     Route: 042
     Dates: start: 202006
  2. REBIF [Concomitant]
     Active Substance: INTERFERON BETA-1A
  3. COPAXONE [Concomitant]
     Active Substance: GLATIRAMER ACETATE
  4. TYSABRI [Concomitant]
     Active Substance: NATALIZUMAB
  5. TECFIDERA [Concomitant]
     Active Substance: DIMETHYL FUMARATE
  6. AUBAGIO [Concomitant]
     Active Substance: TERIFLUNOMIDE

REACTIONS (2)
  - Maternal exposure before pregnancy [Unknown]
  - Pyelonephritis [Recovered/Resolved]

NARRATIVE: CASE EVENT DATE: 20200701
